FAERS Safety Report 11439536 (Version 1)
Quarter: 2015Q3

REPORT INFORMATION
  Report Type: Spontaneous
  Country: BR (occurrence: BR)
  Receive Date: 20150901
  Receipt Date: 20150901
  Transmission Date: 20151125
  Serious: Yes (Other)
  Sender: FDA-Public Use
  Company Number: BR-ROCHE-1627779

PATIENT
  Age: 35 Year
  Sex: Female

DRUGS (4)
  1. AVASTIN [Suspect]
     Active Substance: BEVACIZUMAB
     Indication: BREAST CANCER METASTATIC
     Dosage: RECEIVED 5 CYCLES BY APR/2014
     Route: 065
     Dates: start: 201312
  2. GOSERELIN [Suspect]
     Active Substance: GOSERELIN
     Indication: BREAST CANCER METASTATIC
     Route: 065
     Dates: start: 201404
  3. PACLITAXEL. [Suspect]
     Active Substance: PACLITAXEL
     Indication: BREAST CANCER METASTATIC
     Dosage: RECEIVED 5 CYCLES
     Route: 065
     Dates: start: 201312, end: 201404
  4. TAMOXIFEN [Suspect]
     Active Substance: TAMOXIFEN
     Indication: BREAST CANCER METASTATIC
     Route: 065
     Dates: start: 201404

REACTIONS (4)
  - Neuropathy peripheral [Unknown]
  - Oedema peripheral [Unknown]
  - Therapy responder [Unknown]
  - Fatigue [Unknown]

NARRATIVE: CASE EVENT DATE: 201404
